FAERS Safety Report 6937651-6 (Version None)
Quarter: 2010Q3

REPORT INFORMATION
  Report Type: 
  Country: None (occurrence: None)
  Receive Date: 20100820
  Receipt Date: 20100820
  Transmission Date: 20110219
  Serious: Yes (Other)
  Sender: FDA-Public Use
  Company Number: None

PATIENT
  Age: 19 Year
  Sex: Male
  Weight: 122.4712 kg

DRUGS (1)
  1. BUPROPION HCL [Suspect]
     Indication: DEPRESSION
     Dosage: 1 A DAY DAILY PO
     Route: 048
     Dates: start: 20100813, end: 20100818

REACTIONS (11)
  - AGITATION [None]
  - ANGER [None]
  - BURNING SENSATION [None]
  - HEADACHE [None]
  - HYPERACUSIS [None]
  - HYPERAESTHESIA [None]
  - IRRITABILITY [None]
  - PRODUCT COATING ISSUE [None]
  - PRODUCT SOLUBILITY ABNORMAL [None]
  - PRODUCT SUBSTITUTION ISSUE [None]
  - SOCIAL AVOIDANT BEHAVIOUR [None]
